FAERS Safety Report 16266190 (Version 2)
Quarter: 2019Q2

REPORT INFORMATION
  Report Type: Spontaneous
  Country: US (occurrence: US)
  Receive Date: 20190502
  Receipt Date: 20190509
  Transmission Date: 20190711
  Serious: Yes (Other)
  Sender: FDA-Public Use
  Company Number: US-BIOVITRUM-2019US0826

PATIENT
  Age: 15 Year
  Sex: Male

DRUGS (2)
  1. PHYSIOLOGIC HYDROCORTISONE [Concomitant]
     Dates: start: 20190326
  2. GAMIFANT [Suspect]
     Active Substance: EMAPALUMAB-LZSG
     Indication: HAEMOPHAGOCYTIC LYMPHOHISTIOCYTOSIS
     Dosage: BI-WEEKLY. A TOTAL OF 16 DOSES (10 DOSES AT 3 MG/KG/DOSE AND 6 DOSES OF 6 MG/KG/DOSE)
     Dates: start: 20190219, end: 20190413

REACTIONS (1)
  - T-cell lymphoma [Unknown]

NARRATIVE: CASE EVENT DATE: 201904
